FAERS Safety Report 5965714-0 (Version None)
Quarter: 2008Q4

REPORT INFORMATION
  Report Type: 
  Country: None (occurrence: None)
  Receive Date: 20081125
  Receipt Date: 20081118
  Transmission Date: 20090506
  Serious: Yes (Other)
  Sender: FDA-Public Use
  Company Number: A0758105A

PATIENT
  Age: 23 Year
  Sex: Female
  Weight: 54.5 kg

DRUGS (2)
  1. WELLBUTRIN [Suspect]
     Indication: DEPRESSION
     Route: 048
     Dates: start: 20040101
  2. LEVONORGESTREL [Suspect]
     Dosage: .75MG UNKNOWN
     Route: 048
     Dates: start: 20080301

REACTIONS (2)
  - CONVULSION [None]
  - HIGH RISK SEXUAL BEHAVIOUR [None]
